FAERS Safety Report 10210092 (Version 1)
Quarter: 2014Q2

REPORT INFORMATION
  Report Type: Spontaneous
  Country: DE (occurrence: DE)
  Receive Date: 20140602
  Receipt Date: 20140602
  Transmission Date: 20141212
  Serious: Yes (Life-Threatening)
  Sender: FDA-Public Use
  Company Number: DE-JNJFOC-20140512639

PATIENT
  Age: 58 Year
  Sex: Male

DRUGS (1)
  1. FENTANYL TRANSDERMAL SYSTEM [Suspect]
     Indication: PAIN
     Route: 062

REACTIONS (12)
  - Toxicity to various agents [Unknown]
  - Brain injury [Unknown]
  - Loss of consciousness [Recovered/Resolved]
  - Hypoventilation [Unknown]
  - Bradycardia [Unknown]
  - Hypotension [Unknown]
  - Renal impairment [Recovered/Resolved]
  - Metabolic acidosis [Unknown]
  - Miosis [Unknown]
  - Brain oedema [Unknown]
  - Convulsion [Unknown]
  - Drug diversion [Unknown]
